FAERS Safety Report 4823941-X (Version None)
Quarter: 2005Q4

REPORT INFORMATION
  Report Type: 
  Country: None (occurrence: None)
  Receive Date: 20051107
  Receipt Date: 20051026
  Transmission Date: 20060501
  Serious: Yes (Other)
  Sender: FDA-Public Use
  Company Number: 2005144033

PATIENT
  Age: 71 Year
  Sex: Female
  Weight: 51.7101 kg

DRUGS (2)
  1. ZITHROMAX [Suspect]
     Indication: NASAL DISORDER
     Dosage: 250 MG (250 MG, 1 IN 1 D), ORAL
     Route: 048
     Dates: start: 20051004, end: 20051019
  2. ZITHROMAX [Suspect]
     Indication: PHARYNGOLARYNGEAL PAIN
     Dosage: 250 MG (250 MG, 1 IN 1 D), ORAL
     Route: 048
     Dates: start: 20051004, end: 20051019

REACTIONS (8)
  - ABDOMINAL PAIN [None]
  - AGEUSIA [None]
  - ANOSMIA [None]
  - COUGH [None]
  - DRUG INEFFECTIVE [None]
  - MALAISE [None]
  - RASH [None]
  - TONGUE DISCOLOURATION [None]
